FAERS Safety Report 12859437 (Version 1)
Quarter: 2016Q4

REPORT INFORMATION
  Report Type: Spontaneous
  Country: US (occurrence: US)
  Receive Date: 20161018
  Receipt Date: 20161018
  Transmission Date: 20170207
  Serious: Yes (Other)
  Sender: FDA-Public Use
  Company Number: US-TEVA-703537USA

PATIENT
  Sex: Female

DRUGS (4)
  1. PHENERGAN [Concomitant]
     Active Substance: PROMETHAZINE HYDROCHLORIDE
  2. GABITRIL [Suspect]
     Active Substance: TIAGABINE HYDROCHLORIDE
     Indication: FIBROMYALGIA
     Route: 065
     Dates: end: 2005
  3. ATIVAN [Concomitant]
     Active Substance: LORAZEPAM
  4. NORCO [Concomitant]
     Active Substance: ACETAMINOPHEN\HYDROCODONE BITARTRATE

REACTIONS (5)
  - Cataplexy [Unknown]
  - Fall [Unknown]
  - Intentional product use issue [Unknown]
  - Petit mal epilepsy [Unknown]
  - Narcolepsy [Unknown]
